FAERS Safety Report 10615872 (Version 1)
Quarter: 2014Q4

REPORT INFORMATION
  Report Type: Spontaneous
  Country: ES (occurrence: ES)
  Receive Date: 20141201
  Receipt Date: 20141201
  Transmission Date: 20150529
  Serious: Yes (Hospitalization)
  Sender: FDA-Public Use
  Company Number: ES-JNJFOC-20141113104

PATIENT
  Age: 47 Year
  Sex: Female

DRUGS (4)
  1. INVEGA [Suspect]
     Active Substance: PALIPERIDONE
     Indication: MANIA
     Route: 048
  2. INVEGA [Suspect]
     Active Substance: PALIPERIDONE
     Indication: MANIA
     Route: 048
  3. INVEGA [Suspect]
     Active Substance: PALIPERIDONE
     Indication: MANIA
     Route: 048
  4. INVEGA [Suspect]
     Active Substance: PALIPERIDONE
     Indication: MANIA
     Route: 048
     Dates: start: 20140404, end: 20140421

REACTIONS (3)
  - Dysphagia [Unknown]
  - Urinary incontinence [Unknown]
  - Parkinsonism [Recovered/Resolved]

NARRATIVE: CASE EVENT DATE: 20140421
